FAERS Safety Report 10514130 (Version 1)
Quarter: 2014Q4

REPORT INFORMATION
  Report Type: Spontaneous
  Country: US (occurrence: US)
  Receive Date: 20141013
  Receipt Date: 20141013
  Transmission Date: 20150528
  Serious: No
  Sender: FDA-Public Use
  Company Number: US-ASTRAZENECA-2014SE75270

PATIENT
  Age: 19 Year

DRUGS (5)
  1. CELEXA [Concomitant]
     Active Substance: CITALOPRAM HYDROBROMIDE
     Dates: start: 2012
  2. RAMIPRIL. [Concomitant]
     Active Substance: RAMIPRIL
  3. ASPIRIN. [Concomitant]
     Active Substance: ASPIRIN
  4. NEXIUM [Suspect]
     Active Substance: ESOMEPRAZOLE MAGNESIUM
     Route: 048
  5. CRESTOR [Suspect]
     Active Substance: ROSUVASTATIN CALCIUM
     Route: 048

REACTIONS (5)
  - Anxiety [Not Recovered/Not Resolved]
  - Weight increased [Unknown]
  - Toothache [Not Recovered/Not Resolved]
  - Feeling abnormal [Not Recovered/Not Resolved]
  - Loss of libido [Unknown]

NARRATIVE: CASE EVENT DATE: 2009
